FAERS Safety Report 14764048 (Version 1)
Quarter: 2018Q2

REPORT INFORMATION
  Report Type: Spontaneous
  Country: AU (occurrence: AU)
  Receive Date: 20180416
  Receipt Date: 20180416
  Transmission Date: 20180711
  Serious: Yes (Other)
  Sender: FDA-Public Use
  Company Number: AU-IGSA-SR10006118

PATIENT
  Age: 47 Year

DRUGS (1)
  1. FLEBOGAMMA DIF [Suspect]
     Active Substance: HUMAN IMMUNOGLOBULIN G
     Indication: LIMBIC ENCEPHALITIS
     Dosage: 30 G, Q.4WK.
     Route: 042

REACTIONS (2)
  - Suspected transmission of an infectious agent via product [Unknown]
  - Meningitis [Unknown]

NARRATIVE: CASE EVENT DATE: 20180322
